FAERS Safety Report 24755158 (Version 1)
Quarter: 2024Q4

REPORT INFORMATION
  Report Type: Spontaneous
  Country: US (occurrence: US)
  Receive Date: 20241219
  Receipt Date: 20241219
  Transmission Date: 20250115
  Serious: No
  Sender: MILLICENT HOLDINGS
  Company Number: US-Millicent Holdings Ltd.-MILL20241300

PATIENT
  Age: 72 Year
  Sex: Female

DRUGS (1)
  1. INTRAROSA [Suspect]
     Active Substance: PRASTERONE
     Indication: Dyspareunia
     Dosage: 1
     Route: 067
     Dates: start: 202412

REACTIONS (1)
  - Application site discharge [Not Recovered/Not Resolved]

NARRATIVE: CASE EVENT DATE: 20241201
